FAERS Safety Report 20970689 (Version 2)
Quarter: 2022Q3

REPORT INFORMATION
  Report Type: Spontaneous
  Country: US (occurrence: US)
  Receive Date: 20220616
  Receipt Date: 20220719
  Transmission Date: 20221027
  Serious: Yes (Hospitalization)
  Sender: FDA-Public Use
  Company Number: US-JNJFOC-20220627571

PATIENT
  Age: 78 Year
  Sex: Male

DRUGS (1)
  1. OPSUMIT [Suspect]
     Active Substance: MACITENTAN
     Indication: Product used for unknown indication
     Route: 048

REACTIONS (8)
  - Leg amputation [Unknown]
  - Wound infection [Unknown]
  - Cough [Unknown]
  - Diarrhoea [Unknown]
  - Oxygen saturation decreased [Unknown]
  - Dyspnoea [Unknown]
  - Dysphonia [Unknown]
  - Vomiting [Unknown]

NARRATIVE: CASE EVENT DATE: 20220504
